FAERS Safety Report 9274800 (Version 1)
Quarter: 2013Q2

REPORT INFORMATION
  Report Type: Spontaneous
  Country: US (occurrence: US)
  Receive Date: 20130507
  Receipt Date: 20130507
  Transmission Date: 20140414
  Serious: No
  Sender: FDA-Public Use
  Company Number: US-B.I. PHARMACEUTICALS,INC./RIDGEFIELD-2013-BI-12268BP

PATIENT
  Sex: Female
  Weight: 75 kg

DRUGS (2)
  1. ZANTAC COOL MINT (TABLETS) [Suspect]
     Indication: DYSPEPSIA
     Dosage: 150 MG
     Route: 048
     Dates: start: 2011
  2. ZANTAC COOL MINT (TABLETS) [Suspect]
     Indication: DYSPEPSIA

REACTIONS (1)
  - Incorrect drug administration duration [Not Recovered/Not Resolved]
